FAERS Safety Report 18692426 (Version 2)
Quarter: 2021Q1

REPORT INFORMATION
  Report Type: Spontaneous
  Country: JP (occurrence: JP)
  Receive Date: 20210103
  Receipt Date: 20210106
  Transmission Date: 20210419
  Serious: Yes (Other)
  Sender: FDA-Public Use
  Company Number: JP-BEH-2020126742

PATIENT

DRUGS (1)
  1. ALBUMINAR?25 [Suspect]
     Active Substance: ALBUMIN HUMAN
     Dosage: 25 GRAM, QD
     Route: 042

REACTIONS (2)
  - Drug ineffective [Unknown]
  - Oedema [Unknown]
